FAERS Safety Report 16998187 (Version 1)
Quarter: 2019Q4

REPORT INFORMATION
  Report Type: Spontaneous
  Country: US (occurrence: US)
  Receive Date: 20190925
  Receipt Date: 20190925
  Transmission Date: 20200122
  Serious: No
  Sender: FDA-Public Use
  Company Number: None

PATIENT
  Age: 59 Year
  Sex: Female

DRUGS (1)
  1. MAYZENT [Suspect]
     Active Substance: SIPONIMOD
     Route: 048
     Dates: start: 201909

REACTIONS (5)
  - Headache [None]
  - Tremor [None]
  - Hot flush [None]
  - Balance disorder [None]
  - Dizziness [None]

NARRATIVE: CASE EVENT DATE: 20190925
